FAERS Safety Report 8447705-3 (Version None)
Quarter: 2012Q2

REPORT INFORMATION
  Report Type: 
  Country: None (occurrence: None)
  Receive Date: 20120619
  Receipt Date: 20120611
  Transmission Date: 20120825
  Serious: Yes (Other)
  Sender: FDA-Public Use
  Company Number: ZA-PFIZER INC-2012126786

PATIENT
  Age: 60 Year
  Sex: Female

DRUGS (2)
  1. VARENICLINE TARTRATE [Suspect]
     Dosage: 1 MG, UNK
     Route: 048
     Dates: start: 20120305
  2. ALPRAZOLAM [Concomitant]
     Dosage: UNK

REACTIONS (11)
  - HYPERTENSION [None]
  - THINKING ABNORMAL [None]
  - FEELING ABNORMAL [None]
  - PNEUMONIA [None]
  - HEART VALVE INCOMPETENCE [None]
  - ATRIAL FIBRILLATION [None]
  - DYSPNOEA [None]
  - SWELLING FACE [None]
  - HEART RATE INCREASED [None]
  - HEADACHE [None]
  - GINGIVAL PAIN [None]
